FAERS Safety Report 14843625 (Version 2)
Quarter: 2019Q4

REPORT INFORMATION
  Report Type: Spontaneous
  Country: NL (occurrence: NL)
  Receive Date: 20180503
  Receipt Date: 20191114
  Transmission Date: 20200122
  Serious: Yes (Other)
  Sender: FDA-Public Use
  Company Number: NL-MYLANLABS-2018M1028764

PATIENT
  Age: 60 Year
  Sex: Female
  Weight: 81 kg

DRUGS (14)
  1. NITROFURANTOIN. [Suspect]
     Active Substance: NITROFURANTOIN
     Indication: PROPHYLAXIS URINARY TRACT INFECTION
     Dosage: 1 MAAL PER DAG 1 TABLET (1DD 100MG)
     Route: 048
     Dates: end: 20161210
  2. OMEPRAZOL [Concomitant]
     Active Substance: OMEPRAZOLE
     Indication: PRODUCT USED FOR UNKNOWN INDICATION
     Dosage: 20 MG, QD
     Route: 048
     Dates: start: 20151027, end: 20170922
  3. PARACETAMOL [Concomitant]
     Active Substance: ACETAMINOPHEN
     Indication: PRODUCT USED FOR UNKNOWN INDICATION
     Dosage: 500 MG, QD (1 MAAL PER DAG 1 TABLET)
     Route: 048
     Dates: start: 20170503, end: 20170908
  4. METOPROLOL. [Concomitant]
     Active Substance: METOPROLOL
     Indication: PRODUCT USED FOR UNKNOWN INDICATION
     Dosage: 1 MAAL PER DAG 1 TABLET
     Route: 048
     Dates: start: 20151211
  5. CITALOPRAM [Concomitant]
     Active Substance: CITALOPRAM HYDROBROMIDE
     Dosage: 20 MG, QD
     Route: 048
     Dates: start: 20170922
  6. CLONAZEPAM. [Concomitant]
     Active Substance: CLONAZEPAM
     Indication: PRODUCT USED FOR UNKNOWN INDICATION
     Dosage: ZO NODIG ^BIJ INSULT 10 DRUPPELS IN WANGZAK
     Route: 050
     Dates: start: 20151027
  7. LEVETIRACETAM. [Concomitant]
     Active Substance: LEVETIRACETAM
     Indication: PRODUCT USED FOR UNKNOWN INDICATION
     Dosage: 500 MG, BID (2 MAAL PER DAG 2 TABLETTEN)
     Route: 048
     Dates: start: 20151027
  8. CRANBERRY. [Concomitant]
     Active Substance: CRANBERRY
     Indication: PRODUCT USED FOR UNKNOWN INDICATION
     Dosage: 1 DF, QD
     Route: 048
     Dates: start: 20151030
  9. METFORMINE [Concomitant]
     Active Substance: METFORMIN HYDROCHLORIDE
     Indication: PRODUCT USED FOR UNKNOWN INDICATION
     Dosage: 500 MG, QD
     Route: 048
     Dates: start: 20170721, end: 20170912
  10. MACROGOL [Concomitant]
     Active Substance: POLYETHYLENE GLYCOLS
     Indication: PRODUCT USED FOR UNKNOWN INDICATION
     Dosage: 1 MAAL PER WEEK 1 STUK
     Route: 048
     Dates: start: 20170630
  11. CALCIUMCARBIMIDUM [Concomitant]
     Indication: PRODUCT USED FOR UNKNOWN INDICATION
     Dosage: 1 DF, QD
     Route: 048
     Dates: start: 20160624
  12. BEPANTHEN [Concomitant]
     Indication: PRODUCT USED FOR UNKNOWN INDICATION
     Dosage: 10 MG, QD
     Route: 003
     Dates: start: 20160129
  13. NITROFURANTOIN. [Suspect]
     Active Substance: NITROFURANTOIN
     Dosage: 50 MG, QD (1X PER DAG 1 STUK )
     Route: 048
     Dates: start: 20161211, end: 20170908
  14. CITALOPRAM [Concomitant]
     Active Substance: CITALOPRAM HYDROBROMIDE
     Indication: PRODUCT USED FOR UNKNOWN INDICATION
     Dosage: 10MG 1DD 3 ST
     Route: 048
     Dates: start: 20151028, end: 20170922

REACTIONS (4)
  - Nausea [Recovered/Resolved]
  - Jaundice [Recovered/Resolved]
  - Fatigue [Recovered/Resolved]
  - Hepatitis [Recovered/Resolved]

NARRATIVE: CASE EVENT DATE: 20170906
